FAERS Safety Report 13611370 (Version 2)
Quarter: 2017Q3

REPORT INFORMATION
  Report Type: Spontaneous
  Country: US (occurrence: US)
  Receive Date: 20170605
  Receipt Date: 20170823
  Transmission Date: 20171127
  Serious: No
  Sender: FDA-Public Use
  Company Number: US-PFIZER INC-2017241858

PATIENT
  Age: 66 Year
  Sex: Female
  Weight: 122.3 kg

DRUGS (21)
  1. LETROZOLE. [Suspect]
     Active Substance: LETROZOLE
     Dosage: UNK, DAILY
     Dates: start: 20160321
  2. XGEVA [Concomitant]
     Active Substance: DENOSUMAB
     Dosage: UNK
  3. JANUVIA [Concomitant]
     Active Substance: SITAGLIPTIN PHOSPHATE
     Dosage: 100 MG, 1X/DAY[DAILY]
     Route: 048
  4. LOPRESSOR [Concomitant]
     Active Substance: METOPROLOL TARTRATE
     Dosage: 50 MG, 2X/DAY
     Route: 048
  5. GABAPENTIN. [Concomitant]
     Active Substance: GABAPENTIN
     Indication: PAIN
     Dosage: 600 MG, DAILY [AT NIGHT ]
  6. IBRANCE [Suspect]
     Active Substance: PALBOCICLIB
     Indication: BREAST CANCER METASTATIC
     Dosage: 75 MG, CYCLIC [75MG DAILY 21 OUT OF EVERY 28 DAYS]
  7. FEMARA [Concomitant]
     Active Substance: LETROZOLE
     Dosage: 2.5 MG, 1X/DAY
     Route: 048
  8. IBRANCE [Suspect]
     Active Substance: PALBOCICLIB
     Dosage: 100 MG, CYCLIC [100MG DAILY 21 OUT OF EVERY 28 DAYS]
  9. ANASTROZOLE. [Concomitant]
     Active Substance: ANASTROZOLE
     Dosage: UNK
     Dates: start: 201602
  10. NEURONTIN [Concomitant]
     Active Substance: GABAPENTIN
     Dosage: 600 MG, DAILY[PATIENT TAKING DIFFERENTLY: TAKE 600MG BY MOUTH NIGHTLY]
  11. NORCO [Concomitant]
     Active Substance: ACETAMINOPHEN\HYDROCODONE BITARTRATE
     Indication: PAIN
     Dosage: 1 DF, AS NEEDED [7.25MG HYDROCODONE,  325MG ACETAMINOPHEN], [EVERY 4 (FOUR) HOURS AS NEEDED]
     Route: 048
  12. IBRANCE [Suspect]
     Active Substance: PALBOCICLIB
     Dosage: 100 MG, DAILY [TAKE WITH FOOD DAYS 1-21], [TAKE 1 CAPSULE PO QDX 21 DAYS]
     Route: 048
     Dates: start: 20170816
  13. TAXOTERE [Concomitant]
     Active Substance: DOCETAXEL
     Dosage: UNK [BEFORE MEALS]
  14. LASIX [Concomitant]
     Active Substance: FUROSEMIDE
     Indication: WEIGHT INCREASED
     Dosage: 40 MG, DAILY [TAKE 1 TABLET (40 MG TOTAL) BY MOUTH DAILY. OR TWICE DAY PRN WEIGHT INCREASE]
     Route: 048
  15. LEVEMIR [Concomitant]
     Active Substance: INSULIN DETEMIR
     Dosage: 20 IU, DAILY[20UNITS UNDER THE SKIN DAILY. 20 UNITS AT NIGHT]
     Route: 058
  16. ZOFRAN [Concomitant]
     Active Substance: ONDANSETRON HYDROCHLORIDE
     Dosage: 8 MG, AS NEEDED [EVERY 12 (TWELVE) HOURS AS NEEDED]
     Route: 048
  17. HYDROCODONE BITARTRATE AND ACETAMINOPHEN [Concomitant]
     Active Substance: ACETAMINOPHEN\HYDROCODONE BITARTRATE
     Dosage: UNK [HYDROCODONE- 10MG/ACETAMINOPHEN-325MG]
  18. ASPIRIN. [Concomitant]
     Active Substance: ASPIRIN
     Dosage: 81 MG, DAILY
     Route: 048
  19. VITAMIN D3 [Concomitant]
     Active Substance: CHOLECALCIFEROL
     Dosage: 5000 IU, DAILY
     Route: 048
  20. COZAAR [Concomitant]
     Active Substance: LOSARTAN POTASSIUM
     Dosage: 100 MG, DAILY
     Route: 048
  21. INSULIN [Concomitant]
     Active Substance: INSULIN NOS

REACTIONS (2)
  - Feeling cold [Unknown]
  - Nausea [Unknown]

NARRATIVE: CASE EVENT DATE: 201703
